FAERS Safety Report 21568728 (Version 1)
Quarter: 2022Q4

REPORT INFORMATION
  Report Type: Spontaneous
  Country: CA (occurrence: CA)
  Receive Date: 20221108
  Receipt Date: 20221108
  Transmission Date: 20230113
  Serious: Yes (Other)
  Sender: FDA-Public Use
  Company Number: CA-CELLTRION INC.-2022CA017018

PATIENT

DRUGS (10)
  1. INFLECTRA [Suspect]
     Active Substance: INFLIXIMAB-DYYB
     Indication: Crohn^s disease
     Dosage: 1500 MG, INDUCTION AT WEEK 0, 2, 6, THEN MAINTENANCE AT EVERY 8 WEEKS
     Route: 042
     Dates: start: 20171026
  2. INFLECTRA [Suspect]
     Active Substance: INFLIXIMAB-DYYB
     Dosage: 1500 MG, INDUCTION AT WEEK 0, 2, 6, THEN MAINTENANCE AT EVERY 8 WEEKS
     Route: 042
     Dates: start: 20220818
  3. INFLECTRA [Suspect]
     Active Substance: INFLIXIMAB-DYYB
     Dosage: 1500 MG, INDUCTION AT WEEK 0, 2, 6, THEN MAINTENANCE AT EVERY 8 WEEKS
     Route: 042
     Dates: start: 20221028
  4. INFLECTRA [Suspect]
     Active Substance: INFLIXIMAB-DYYB
     Dosage: 1500 MG, INDUCTION AT WEEK 0, 2, 6, THEN MAINTENANCE AT EVERY 8 WEEKS
     Route: 042
     Dates: start: 20221028
  5. AZATHIOPRINE [Concomitant]
     Active Substance: AZATHIOPRINE
     Dosage: 250 MG, FREQUENCY UNKNOWN
     Route: 065
     Dates: start: 201705
  6. NEXIUM [Concomitant]
     Active Substance: ESOMEPRAZOLE MAGNESIUM
     Dosage: 1 DF, DOSAGE UNKNOWN
     Route: 065
  7. PREDNISONE [Concomitant]
     Active Substance: PREDNISONE
     Dosage: 1 DF, DOSING UNKNOWN
     Route: 065
     Dates: start: 201705
  8. SULFATRIM [Concomitant]
     Active Substance: SULFAMETHOXAZOLE\TRIMETHOPRIM
     Dosage: 800 MG, 3X/WEEK
     Route: 065
  9. ZANTAC [Concomitant]
     Active Substance: RANITIDINE HYDROCHLORIDE
     Dosage: UNK
  10. ZANTAC [Concomitant]
     Active Substance: RANITIDINE HYDROCHLORIDE
     Dosage: UNK

REACTIONS (4)
  - Urinary tract infection bacterial [Unknown]
  - Pyrexia [Recovered/Resolved]
  - Inappropriate schedule of product administration [Unknown]
  - Off label use [Unknown]

NARRATIVE: CASE EVENT DATE: 20220101
